FAERS Safety Report 9341823 (Version 1)
Quarter: 2013Q2

REPORT INFORMATION
  Report Type: Spontaneous
  Country: US (occurrence: None)
  Receive Date: 20130606
  Receipt Date: 20130606
  Transmission Date: 20140414
  Serious: Yes (Death)
  Sender: FDA-Public Use
  Company Number: ACET20130014

PATIENT
  Age: 17 Year
  Sex: Female
  Weight: 50 kg

DRUGS (1)
  1. Q-PAP [Suspect]
     Indication: OVERDOSE
     Route: 048

REACTIONS (4)
  - Acute hepatic failure [None]
  - Overdose [None]
  - Encephalopathy [None]
  - Renal failure [None]
